FAERS Safety Report 5884727-0 (Version None)
Quarter: 2008Q3

REPORT INFORMATION
  Report Type: 
  Country: None (occurrence: None)
  Receive Date: 20080916
  Receipt Date: 20080910
  Transmission Date: 20090109
  Serious: Yes (Hospitalization)
  Sender: FDA-Public Use
  Company Number: JP-BAYER-200812127BYL

PATIENT
  Age: 34 Year
  Sex: Male
  Weight: 85 kg

DRUGS (2)
  1. NEXAVAR [Suspect]
     Indication: RENAL CELL CARCINOMA STAGE IV
     Dosage: UNIT DOSE: 200 MG
     Route: 048
     Dates: start: 20080609, end: 20080831
  2. ACETAMINOPHEN [Concomitant]
     Route: 048
     Dates: start: 20080609, end: 20080618

REACTIONS (4)
  - DIARRHOEA [None]
  - FRACTURE [None]
  - PALMAR-PLANTAR ERYTHRODYSAESTHESIA SYNDROME [None]
  - PNEUMOTHORAX [None]
